FAERS Safety Report 26094988 (Version 2)
Quarter: 2025Q4

REPORT INFORMATION
  Report Type: Spontaneous
  Country: US (occurrence: US)
  Receive Date: 20251126
  Receipt Date: 20251226
  Transmission Date: 20260118
  Serious: No
  Sender: AMGEN
  Company Number: US-AMGEN-USASP2025231601

PATIENT
  Age: 48 Year
  Sex: Female

DRUGS (1)
  1. AIMOVIG [Suspect]
     Active Substance: ERENUMAB-AOOE
     Indication: Migraine
     Dosage: 140 MILLIGRAM, Q4WK
     Route: 058
     Dates: start: 2025

REACTIONS (7)
  - Product communication issue [Unknown]
  - Device use error [Unknown]
  - Fear of injection [Recovered/Resolved]
  - Product administration error [Unknown]
  - Dizziness [Not Recovered/Not Resolved]
  - Migraine [Not Recovered/Not Resolved]
  - Aura [Unknown]

NARRATIVE: CASE EVENT DATE: 20250101
